FAERS Safety Report 7741486-4 (Version None)
Quarter: 2011Q3

REPORT INFORMATION
  Report Type: 
  Country: None (occurrence: None)
  Receive Date: 20110909
  Receipt Date: 20110907
  Transmission Date: 20111222
  Serious: Yes (Other)
  Sender: FDA-Public Use
  Company Number: US-MERCK-1109USA00866

PATIENT
  Sex: Female

DRUGS (3)
  1. FOSAMAX [Suspect]
     Route: 048
     Dates: start: 20020101, end: 20081201
  2. FOSAMAX [Suspect]
     Route: 048
     Dates: start: 20020101, end: 20081201
  3. FOSAMAX [Suspect]
     Route: 048

REACTIONS (1)
  - FEMUR FRACTURE [None]
